FAERS Safety Report 4369260-X (Version None)
Quarter: 2004Q2

REPORT INFORMATION
  Report Type: 
  Country: None (occurrence: None)
  Receive Date: 20040603
  Receipt Date: 20040301
  Transmission Date: 20050107
  Serious: Yes (Other)
  Sender: FDA-Public Use
  Company Number: US-GLAXOSMITHKLINE-A0500675A

PATIENT
  Age: 61 Year
  Sex: Male
  Weight: 88.6 kg

DRUGS (7)
  1. AUGMENTIN [Suspect]
     Indication: ILL-DEFINED DISORDER
     Route: 048
  2. NORVASC [Concomitant]
     Indication: HYPERTENSION
     Dosage: 10MG PER DAY
     Route: 048
  3. ZESTORETIC [Concomitant]
     Indication: HYPERTENSION
     Dosage: 20MG PER DAY
     Route: 048
  4. GLUCOTROL [Concomitant]
     Dosage: 5MG TWICE PER DAY
     Route: 048
  5. KLOR-CON [Concomitant]
     Dosage: 10MG PER DAY
     Route: 048
  6. ZOCOR [Concomitant]
     Dosage: 10MG PER DAY
     Route: 048
  7. SINGULAIR [Concomitant]
     Indication: ASTHMA
     Dosage: 10MG PER DAY
     Route: 048

REACTIONS (1)
  - ANGIONEUROTIC OEDEMA [None]
